FAERS Safety Report 22314874 (Version 1)
Quarter: 2023Q2

REPORT INFORMATION
  Report Type: Spontaneous
  Country: US (occurrence: None)
  Receive Date: 20230511
  Receipt Date: 20230511
  Transmission Date: 20230721
  Serious: Yes (Hospitalization)
  Sender: FDA-Public Use
  Company Number: None

PATIENT
  Age: 51 Year
  Sex: Female
  Weight: 60.75 kg

DRUGS (1)
  1. TYSABRI [Suspect]
     Active Substance: NATALIZUMAB
     Indication: Multiple sclerosis relapse
     Dosage: OTHER FREQUENCY : EVERY 8 WEEKS;?
     Route: 041
     Dates: start: 20131224

REACTIONS (6)
  - Chest pain [None]
  - Dyspnoea [None]
  - Troponin increased [None]
  - Headache [None]
  - Blood pressure systolic increased [None]
  - Infusion related reaction [None]

NARRATIVE: CASE EVENT DATE: 20230416
